FAERS Safety Report 5086059-X (Version None)
Quarter: 2006Q3

REPORT INFORMATION
  Report Type: 
  Country: None (occurrence: None)
  Receive Date: 20060818
  Receipt Date: 20060808
  Transmission Date: 20061208
  Serious: Yes (Life-Threatening)
  Sender: FDA-Public Use
  Company Number: 2005083949

PATIENT
  Age: 17 Year
  Sex: Female

DRUGS (3)
  1. PIROXICAM [Suspect]
     Indication: RENAL COLIC
     Dosage: ORAL
     Route: 048
     Dates: start: 20041115, end: 20041115
  2. DEBRIDAT (TRIMEBUTINE) [Suspect]
     Indication: DRUG USE FOR UNKNOWN INDICATION
     Dosage: 100 MG (100 MG, 1 IN 1 TOTAL), ORAL
     Route: 048
     Dates: start: 20050415, end: 20050415
  3. PHLOROGLUCINOL (PHLOROGLUCINOL) [Suspect]
     Indication: RENAL COLIC
     Dosage: ORAL
     Route: 048
     Dates: start: 20050328, end: 20050328

REACTIONS (3)
  - ASTHMA [None]
  - COUGH [None]
  - RASH [None]
